FAERS Safety Report 4983979-9 (Version None)
Quarter: 2006Q1

REPORT INFORMATION
  Report Type: 
  Country: None (occurrence: None)
  Receive Date: 20060301
  Receipt Date: 20051128
  Transmission Date: 20060701
  Serious: No
  Sender: FDA-Public Use
  Company Number: S05-USA-05103-01

PATIENT
  Age: 77 Year
  Sex: Male

DRUGS (16)
  1. NAMENDA [Suspect]
     Indication: DEMENTIA ALZHEIMER'S TYPE
     Dosage: 20 MG ONCE PO
     Route: 048
     Dates: start: 20051124, end: 20051124
  2. NAMENDA [Suspect]
     Indication: DEMENTIA ALZHEIMER'S TYPE
     Dosage: 5 MG QD PO
     Route: 048
     Dates: start: 20051017, end: 20051023
  3. ARICEPT (DONEPEZILE HYDROCHLORIDE) [Concomitant]
  4. FLUTAMIDE [Concomitant]
  5. PENTOXIFYLLINE [Concomitant]
  6. NAMENDA [Suspect]
     Indication: DEMENTIA ALZHEIMER'S TYPE
     Dosage: 5 MG BID PO
     Route: 048
     Dates: start: 20051024, end: 20051030
  7. NAMENDA [Suspect]
     Indication: DEMENTIA ALZHEIMER'S TYPE
     Dosage: 15 MG QD PO
     Route: 048
     Dates: start: 20051031, end: 20051106
  8. NAMENDA [Suspect]
     Indication: DEMENTIA ALZHEIMER'S TYPE
     Dosage: 10 MG BID PO
     Route: 048
     Dates: start: 20051107
  9. ARICEPT [Suspect]
     Indication: DEMENTIA ALZHEIMER'S TYPE
     Dates: start: 20051124, end: 20051124
  10. FLUTAMIDE [Suspect]
     Indication: PANCREATIC DISORDER
     Dosage: 250 MG ONCE PO
     Route: 048
     Dates: start: 20051124, end: 20051124
  11. FLUTAMIDE [Suspect]
     Indication: ULCER
     Dosage: 250 MG ONCE PO
     Route: 048
     Dates: start: 20051124, end: 20051124
  12. PENTOXIFYLLINE [Suspect]
     Indication: CARDIOVASCULAR DISORDER
     Dosage: 800 MG ONCE PO
     Route: 048
     Dates: start: 20051124, end: 20051124
  13. ASPIRIN [Suspect]
     Indication: CARDIOVASCULAR DISORDER
     Dosage: 650 MG ONCE PO
     Route: 048
     Dates: start: 20051124, end: 20051124
  14. CRESTOR [Suspect]
     Indication: BLOOD CHOLESTEROL INCREASED
     Dosage: 10 MG ONCE PO
     Route: 048
     Dates: start: 20051124, end: 20051124
  15. ECOTRIN (ACETYLSALICYLIC ACID) [Concomitant]
  16. CRESTOR [Concomitant]

REACTIONS (4)
  - HYPERSOMNIA [None]
  - LETHARGY [None]
  - MULTIPLE DRUG OVERDOSE ACCIDENTAL [None]
  - SPEECH DISORDER [None]
